FAERS Safety Report 5910233-0 (Version None)
Quarter: 2008Q4

REPORT INFORMATION
  Report Type: 
  Country: None (occurrence: None)
  Receive Date: 20081007
  Receipt Date: 20071024
  Transmission Date: 20090506
  Serious: No
  Sender: FDA-Public Use
  Company Number: US-ASTRAZENECA-2007UW24727

PATIENT
  Age: 74 Year
  Sex: Female

DRUGS (2)
  1. ARIMIDEX [Suspect]
     Route: 048
     Dates: start: 20061001
  2. ACTOS [Concomitant]
     Indication: HYPERTENSION
     Dates: start: 19930101

REACTIONS (2)
  - BONE DISORDER [None]
  - OEDEMA PERIPHERAL [None]
